FAERS Safety Report 4962251-7 (Version None)
Quarter: 2006Q1

REPORT INFORMATION
  Report Type: 
  Country: None (occurrence: None)
  Receive Date: 20060331
  Receipt Date: 20060315
  Transmission Date: 20060701
  Serious: Yes (Disabling)
  Sender: FDA-Public Use
  Company Number: US200603005540

PATIENT
  Sex: Female

DRUGS (5)
  1. FORTEO [Suspect]
     Indication: OSTEOPOROSIS
  2. FORTEO [Concomitant]
  3. HYZAAR [Concomitant]
  4. AMLODIPINE BESYLATE [Concomitant]
  5. WARFARIN SODIUM [Concomitant]

REACTIONS (4)
  - NOCTURIA [None]
  - PHARMACEUTICAL PRODUCT COMPLAINT [None]
  - ROTATOR CUFF SYNDROME [None]
  - URINARY TRACT DISORDER [None]
